FAERS Safety Report 4706904-4 (Version None)
Quarter: 2005Q2

REPORT INFORMATION
  Report Type: 
  Country: None (occurrence: None)
  Receive Date: 20050630
  Receipt Date: 20050628
  Transmission Date: 20051028
  Serious: Yes (Other)
  Sender: FDA-Public Use
  Company Number: 05-06-1116

PATIENT
  Age: 86 Year
  Sex: Male

DRUGS (6)
  1. METFORMIN HCL [Suspect]
     Dosage: 500MG ORAL
     Route: 048
     Dates: end: 20050615
  2. OMEPRAZOLE [Concomitant]
  3. ASPIRIN [Concomitant]
  4. SIMVASTATIN [Concomitant]
  5. ATROVENT [Concomitant]
  6. SALBUTAMOL [Concomitant]

REACTIONS (3)
  - LOWER RESPIRATORY TRACT INFECTION [None]
  - METABOLIC ACIDOSIS [None]
  - RENAL FAILURE ACUTE [None]
